FAERS Safety Report 9098155 (Version 1)
Quarter: 2013Q1

REPORT INFORMATION
  Report Type: Other
  Country: GB (occurrence: GB)
  Receive Date: 20130213
  Receipt Date: 20130213
  Transmission Date: 20140127
  Serious: Yes (Life-Threatening, Hospitalization, Other)
  Sender: FDA-Public Use
  Company Number: GB-WATSON-2013-02220

PATIENT
  Age: 30 Year
  Sex: Male

DRUGS (7)
  1. LAMOTRIGINE (UNKNOWN) [Suspect]
     Indication: GASTRIC DISORDER
     Dosage: 50 MG, BID
     Route: 048
  2. LANSOPRAZOLE (UNKNOWN) [Suspect]
     Indication: PEPTIC ULCER
     Dosage: 30 MG, DAILY
     Route: 048
  3. CLOZARIL [Suspect]
     Indication: SCHIZOPHRENIA
     Dosage: 350 MG, UNKNOWN
     Route: 048
     Dates: start: 20010701
  4. INSULIN [Suspect]
     Indication: DIABETES MELLITUS
     Dosage: 14 MICROLITRES , BID
     Route: 058
  5. HYOSCINE [Suspect]
     Indication: SALIVARY HYPERSECRETION
     Dosage: 30 MCG, TID
     Route: 048
  6. PARACETAMOL [Concomitant]
     Indication: PAIN
     Dosage: 1 G, UNKNOWN
     Route: 048
  7. CLARITHROMYCIN [Concomitant]
     Indication: PRODUCT USED FOR UNKNOWN INDICATION
     Dosage: 500 MG, UNKNOWN
     Route: 065

REACTIONS (10)
  - Hypophagia [Unknown]
  - Diarrhoea [Unknown]
  - Diabetic ketoacidosis [Recovering/Resolving]
  - Type 1 diabetes mellitus [Not Recovered/Not Resolved]
  - Neutrophil count increased [Unknown]
  - General physical health deterioration [Unknown]
  - Pneumonia [Recovering/Resolving]
  - Chest discomfort [Recovering/Resolving]
  - Sepsis [Recovering/Resolving]
  - White blood cell count increased [Unknown]
